FAERS Safety Report 4707408-5 (Version None)
Quarter: 2005Q3

REPORT INFORMATION
  Report Type: 
  Country: None (occurrence: None)
  Receive Date: 20050706
  Receipt Date: 20050531
  Transmission Date: 20060218
  Serious: Yes (Death)
  Sender: FDA-Public Use
  Company Number: 2005PK00917

PATIENT
  Age: 18996 Day
  Sex: Female
  Weight: 54 kg

DRUGS (6)
  1. SEROQUEL [Suspect]
     Route: 048
     Dates: start: 20050501
  2. NEXIUM [Suspect]
     Route: 048
  3. LAMICTAL [Suspect]
     Route: 048
  4. ZOLOFT [Suspect]
     Route: 048
  5. EUTHYROX [Suspect]
  6. KREON [Suspect]

REACTIONS (5)
  - ARRHYTHMIA [None]
  - BLOOD CREATINE PHOSPHOKINASE INCREASED [None]
  - CARDIAC ARREST [None]
  - SUDDEN DEATH [None]
  - TACHYCARDIA [None]
